FAERS Safety Report 17714463 (Version 2)
Quarter: 2020Q2

REPORT INFORMATION
  Report Type: Spontaneous
  Country: US (occurrence: US)
  Receive Date: 20200427
  Receipt Date: 20200428
  Transmission Date: 20200714
  Serious: No
  Sender: FDA-Public Use
  Company Number: US-PFIZER INC-2020166695

PATIENT
  Age: 79 Year
  Sex: Female
  Weight: 67.13 kg

DRUGS (2)
  1. XELJANZ XR [Suspect]
     Active Substance: TOFACITINIB CITRATE
     Indication: RHEUMATOID ARTHRITIS
     Dosage: 11 MG, ONCE A DAY
     Route: 048
     Dates: start: 202002
  2. FUROSEMIDE [FUROSEMIDE SODIUM] [Concomitant]
     Active Substance: FUROSEMIDE SODIUM
     Dosage: 40 MG (ONCE OR TWICE A WEEK TOPS)

REACTIONS (2)
  - Weight increased [Unknown]
  - Peripheral swelling [Not Recovered/Not Resolved]

NARRATIVE: CASE EVENT DATE: 202004
